FAERS Safety Report 12157127 (Version 1)
Quarter: 2016Q1

REPORT INFORMATION
  Report Type: Report from Study
  Country: US (occurrence: US)
  Receive Date: 20160307
  Receipt Date: 20160307
  Transmission Date: 20160526
  Serious: Yes (Other)
  Sender: FDA-Public Use
  Company Number: US-AMGEN-USASL2016027353

PATIENT
  Age: 56 Year
  Sex: Female

DRUGS (1)
  1. ENBREL [Suspect]
     Active Substance: ETANERCEPT
     Indication: RHEUMATOID ARTHRITIS
     Dosage: UNK
     Route: 065
     Dates: start: 20141112

REACTIONS (6)
  - Limb discomfort [Unknown]
  - Discomfort [Unknown]
  - Back disorder [Unknown]
  - Activities of daily living impaired [Unknown]
  - Spinal cord disorder [Unknown]
  - Mental disorder [Unknown]
